FAERS Safety Report 15490847 (Version 2)
Quarter: 2018Q4

REPORT INFORMATION
  Report Type: Spontaneous
  Country: DE (occurrence: DE)
  Receive Date: 20181011
  Receipt Date: 20181016
  Transmission Date: 20190205
  Serious: Yes (Other)
  Sender: FDA-Public Use
  Company Number: DE-ABBVIE-18K-062-2511740-00

PATIENT
  Age: 61 Year
  Sex: Male

DRUGS (21)
  1. VENETOCLAX. [Suspect]
     Active Substance: VENETOCLAX
     Indication: CHRONIC LYMPHOCYTIC LEUKAEMIA
     Dosage: 20-50 MG
     Route: 048
     Dates: start: 201803, end: 201803
  2. ISONIAZID. [Concomitant]
     Active Substance: ISONIAZID
     Dates: start: 20170406, end: 201706
  3. RIFAMPICIN [Concomitant]
     Active Substance: RIFAMPIN
     Dates: start: 201809
  4. ETHAMBUTOL [Concomitant]
     Active Substance: ETHAMBUTOL HYDROCHLORIDE
  5. ETHAMBUTOL [Concomitant]
     Active Substance: ETHAMBUTOL HYDROCHLORIDE
     Indication: PRODUCT USED FOR UNKNOWN INDICATION
     Dates: start: 20161224, end: 201704
  6. PYRAZINAMID [Concomitant]
     Active Substance: PYRAZINAMIDE
     Dates: start: 20180913
  7. VENETOCLAX. [Suspect]
     Active Substance: VENETOCLAX
     Route: 048
     Dates: start: 201806
  8. ETHAMBUTOL [Concomitant]
     Active Substance: ETHAMBUTOL HYDROCHLORIDE
     Dates: start: 20170406, end: 201706
  9. ETHAMBUTOL [Concomitant]
     Active Substance: ETHAMBUTOL HYDROCHLORIDE
     Dates: start: 20170808, end: 201711
  10. PYRAZINAMID [Concomitant]
     Active Substance: PYRAZINAMIDE
     Dates: start: 20170808, end: 201711
  11. ISONIAZID. [Concomitant]
     Active Substance: ISONIAZID
     Dates: start: 20170808, end: 201711
  12. RIFAMPICIN [Concomitant]
     Active Substance: RIFAMPIN
     Dates: start: 20170406, end: 201706
  13. PYRAZINAMID [Concomitant]
     Active Substance: PYRAZINAMIDE
     Indication: PRODUCT USED FOR UNKNOWN INDICATION
     Dates: start: 20161224, end: 201704
  14. COTRIMOXAZOL [Concomitant]
     Active Substance: SULFAMETHOXAZOLE\TRIMETHOPRIM
     Indication: PRODUCT USED FOR UNKNOWN INDICATION
     Dosage: HIGH DOSES
     Dates: start: 201707
  15. VENETOCLAX. [Suspect]
     Active Substance: VENETOCLAX
     Route: 048
     Dates: start: 201804, end: 201804
  16. ISONIAZID. [Concomitant]
     Active Substance: ISONIAZID
     Indication: PRODUCT USED FOR UNKNOWN INDICATION
     Dates: start: 20161224, end: 201704
  17. ISONIAZID. [Concomitant]
     Active Substance: ISONIAZID
     Dates: start: 201809
  18. RIFAMPICIN [Concomitant]
     Active Substance: RIFAMPIN
     Dates: start: 20170808, end: 201711
  19. MOXIFLOXACIN. [Concomitant]
     Active Substance: MOXIFLOXACIN
     Indication: PRODUCT USED FOR UNKNOWN INDICATION
     Dates: start: 20170406, end: 201706
  20. VENETOCLAX. [Suspect]
     Active Substance: VENETOCLAX
     Route: 048
     Dates: start: 201805, end: 201805
  21. RIFAMPICIN [Concomitant]
     Active Substance: RIFAMPIN
     Indication: PRODUCT USED FOR UNKNOWN INDICATION
     Dates: start: 20161224, end: 201704

REACTIONS (5)
  - Lymphadenopathy [Unknown]
  - Immune reconstitution inflammatory syndrome [Unknown]
  - Lymph node tuberculosis [Unknown]
  - Mycobacterium tuberculosis complex test positive [Unknown]
  - Tuberculosis [Unknown]

NARRATIVE: CASE EVENT DATE: 201808
